FAERS Safety Report 12280411 (Version 1)
Quarter: 2016Q2

REPORT INFORMATION
  Report Type: Spontaneous
  Country: US (occurrence: US)
  Receive Date: 20160419
  Receipt Date: 20160419
  Transmission Date: 20160815
  Serious: Yes (Hospitalization)
  Sender: FDA-Public Use
  Company Number: US-BEH-2016061232

PATIENT
  Sex: Female
  Weight: 72 kg

DRUGS (38)
  1. LIDOCAINE/PRILOCAINE [Concomitant]
  2. LEVALBUTEROL. [Concomitant]
     Active Substance: LEVALBUTEROL
  3. IPRATROPIUM BROMIDE. [Concomitant]
     Active Substance: IPRATROPIUM BROMIDE
  4. XALATAN [Concomitant]
     Active Substance: LATANOPROST
  5. DICYCLOMINE [Concomitant]
     Active Substance: DICYCLOMINE HYDROCHLORIDE
  6. XANAX [Concomitant]
     Active Substance: ALPRAZOLAM
  7. HIZENTRA [Suspect]
     Active Substance: HUMAN IMMUNOGLOBULIN G
     Indication: IMMUNODEFICIENCY COMMON VARIABLE
     Route: 058
     Dates: start: 20100921
  8. AYR SALINE [Concomitant]
  9. EMLA [Concomitant]
     Active Substance: LIDOCAINE\PRILOCAINE
  10. OMEPRAZOLE. [Concomitant]
     Active Substance: OMEPRAZOLE
  11. ADVAIR HFA [Concomitant]
     Active Substance: FLUTICASONE PROPIONATE\SALMETEROL XINAFOATE
  12. SPIRIVA [Concomitant]
     Active Substance: TIOTROPIUM BROMIDE MONOHYDRATE
  13. PROBIOTIC [Concomitant]
     Active Substance: PROBIOTICS NOS
  14. JANUVIA [Concomitant]
     Active Substance: SITAGLIPTIN PHOSPHATE
  15. ETODOLAC. [Concomitant]
     Active Substance: ETODOLAC
  16. MEDROL [Concomitant]
     Active Substance: METHYLPREDNISOLONE
  17. LATANOPROST. [Concomitant]
     Active Substance: LATANOPROST
  18. CARDIZEM [Concomitant]
     Active Substance: DILTIAZEM HYDROCHLORIDE
  19. GLIMEPIRIDE. [Concomitant]
     Active Substance: GLIMEPIRIDE
  20. HYDROCODONE [Concomitant]
     Active Substance: HYDROCODONE
  21. KETOROLAC [Concomitant]
     Active Substance: KETOROLAC\KETOROLAC TROMETHAMINE
  22. DIPHENHYDRAMINE. [Concomitant]
     Active Substance: DIPHENHYDRAMINE
  23. SYSTANE (HYPROMELLOSE 2910 (4000 MPA.S)) [Concomitant]
     Active Substance: HYPROMELLOSE 2910 (4000 MPA.S)
  24. LANTUS [Concomitant]
     Active Substance: INSULIN GLARGINE
  25. VITAMIN D [Concomitant]
     Active Substance: CHOLECALCIFEROL
  26. EPIPEN [Concomitant]
     Active Substance: EPINEPHRINE
  27. XOPENEX [Concomitant]
     Active Substance: LEVALBUTEROL HYDROCHLORIDE
  28. OXYCODONE [Concomitant]
     Active Substance: OXYCODONE
  29. ZETIA [Concomitant]
     Active Substance: EZETIMIBE
  30. AMIODARONE [Concomitant]
     Active Substance: AMIODARONE
  31. SYMBICORT [Concomitant]
     Active Substance: BUDESONIDE\FORMOTEROL FUMARATE DIHYDRATE
  32. EPINASTINE [Concomitant]
     Active Substance: EPINASTINE
  33. ZANTAC [Concomitant]
     Active Substance: RANITIDINE HYDROCHLORIDE
  34. PREDNISONE. [Concomitant]
     Active Substance: PREDNISONE
  35. PREDNISOLONE. [Concomitant]
     Active Substance: PREDNISOLONE
  36. METFORMIN [Concomitant]
     Active Substance: METFORMIN HYDROCHLORIDE
  37. ACETAMINOPHEN. [Concomitant]
     Active Substance: ACETAMINOPHEN
  38. MICARDIS [Concomitant]
     Active Substance: TELMISARTAN

REACTIONS (1)
  - Rehabilitation therapy [Unknown]
